FAERS Safety Report 6823263-1 (Version None)
Quarter: 2010Q3

REPORT INFORMATION
  Report Type: 
  Country: None (occurrence: None)
  Receive Date: 20100708
  Receipt Date: 20100629
  Transmission Date: 20110219
  Serious: Yes (Other)
  Sender: FDA-Public Use
  Company Number: US-AMGEN-QUU421389

PATIENT
  Sex: Female

DRUGS (1)
  1. ENBREL [Suspect]
     Indication: PSORIATIC ARTHROPATHY
     Route: 058
     Dates: start: 19981101

REACTIONS (4)
  - BRONCHITIS [None]
  - CARDIAC VALVE DISEASE [None]
  - DYSPNOEA [None]
  - LOCALISED INFECTION [None]
